FAERS Safety Report 17729943 (Version 1)
Quarter: 2020Q2

REPORT INFORMATION
  Report Type: Spontaneous
  Country: US (occurrence: US)
  Receive Date: 20200430
  Receipt Date: 20200430
  Transmission Date: 20200714
  Serious: No
  Sender: FDA-Public Use
  Company Number: None

PATIENT
  Age: 33 Year
  Sex: Female

DRUGS (1)
  1. DIPHENHYDRAMINE. [Suspect]
     Active Substance: DIPHENHYDRAMINE
     Route: 042
     Dates: start: 20200423, end: 20200423

REACTIONS (2)
  - Reaction to excipient [None]
  - Anaphylactic reaction [None]

NARRATIVE: CASE EVENT DATE: 20200423
